FAERS Safety Report 7162104-2 (Version None)
Quarter: 2010Q4

REPORT INFORMATION
  Report Type: 
  Country: None (occurrence: None)
  Receive Date: 20101215
  Receipt Date: 20090812
  Transmission Date: 20110411
  Serious: Yes (Disabling)
  Sender: FDA-Public Use
  Company Number: FR-PFIZER INC-2009240367

PATIENT
  Age: 50 Year

DRUGS (1)
  1. LYRICA [Suspect]
     Dosage: UNK
     Route: 048
     Dates: end: 20081117

REACTIONS (2)
  - CHROMATOPSIA [None]
  - VISUAL ACUITY REDUCED [None]
